FAERS Safety Report 6678178-9 (Version None)
Quarter: 2010Q2

REPORT INFORMATION
  Report Type: 
  Country: None (occurrence: None)
  Receive Date: 20100409
  Receipt Date: 20100409
  Transmission Date: 20101027
  Serious: Yes (Other)
  Sender: FDA-Public Use
  Company Number: None

PATIENT
  Age: 30 Year
  Sex: Female
  Weight: 69.5 kg

DRUGS (2)
  1. NUVIGIL [Suspect]
     Indication: SOMNOLENCE
  2. CITALOPRAM HYDROBROMIDE [Concomitant]

REACTIONS (7)
  - AFFECT LABILITY [None]
  - ANGER [None]
  - COMMUNICATION DISORDER [None]
  - CRYING [None]
  - ENERGY INCREASED [None]
  - MANIA [None]
  - PARANOIA [None]
